FAERS Safety Report 9295888 (Version 1)
Quarter: 2013Q1

REPORT INFORMATION
  Report Type: Spontaneous
  Country: US (occurrence: None)
  Receive Date: 20130103
  Receipt Date: 20130103
  Transmission Date: 20140127
  Serious: Yes (Other)
  Sender: FDA-Public Use
  Company Number: DSA_47419_2011

PATIENT
  Sex: 0

DRUGS (1)
  1. XENAZINE [Suspect]
     Indication: HUNTINGTON^S DISEASE
     Route: 048
     Dates: start: 201010, end: 201107

REACTIONS (3)
  - Suicide attempt [None]
  - Parkinsonism [None]
  - Akathisia [None]
